FAERS Safety Report 24879652 (Version 1)
Quarter: 2025Q1

REPORT INFORMATION
  Report Type: Spontaneous
  Country: US (occurrence: None)
  Receive Date: 20250123
  Receipt Date: 20250123
  Transmission Date: 20250408
  Serious: No
  Sender: FDA-CTU
  Company Number: None

PATIENT
  Age: 53 Year
  Sex: Female

DRUGS (1)
  1. COSENTYX [Suspect]
     Active Substance: SECUKINUMAB
     Indication: Psoriasis
     Dosage: 300MG EVERY WEEK SUBCUTANEOUS ?
     Route: 058

REACTIONS (3)
  - Hypersensitivity [None]
  - Oedema peripheral [None]
  - Pruritus [None]

NARRATIVE: CASE EVENT DATE: 20241101
